FAERS Safety Report 8256488-1 (Version None)
Quarter: 2012Q2

REPORT INFORMATION
  Report Type: 
  Country: None (occurrence: None)
  Receive Date: 20120403
  Receipt Date: 20120321
  Transmission Date: 20120825
  Serious: Yes (Other)
  Sender: FDA-Public Use
  Company Number: CHPA2012US005513

PATIENT
  Age: 72 Year
  Sex: Female

DRUGS (5)
  1. ALLERGY MEDICATION [Concomitant]
     Indication: HYPERSENSITIVITY
     Dosage: UNK, ONCE A  MONTH
  2. ZYRTEC [Concomitant]
     Indication: HYPERSENSITIVITY
     Dosage: UNK, QHS
  3. EXCEDRIN (MIGRAINE) [Suspect]
     Indication: MIGRAINE
     Dosage: RECOMMENDED DOSE, UNK
     Route: 048
  4. EXCEDRIN BACK \+ BODY CAPLETS [Suspect]
     Indication: BACK PAIN
     Dosage: RECOMMENDED DOSE, UNK
     Route: 048
  5. EXCEDRIN TENSION HEADACHE CAPLETS [Suspect]
     Indication: TENSION HEADACHE
     Dosage: RECOMMENDED DOSE, UNK
     Route: 048

REACTIONS (2)
  - HERPES ZOSTER [None]
  - FOOT FRACTURE [None]
